FAERS Safety Report 9999058 (Version 1)
Quarter: 2014Q1

REPORT INFORMATION
  Report Type: Spontaneous
  Country: US (occurrence: None)
  Receive Date: 20140311
  Receipt Date: 20140311
  Transmission Date: 20141002
  Serious: Yes (Other)
  Sender: FDA-Public Use
  Company Number: None

PATIENT
  Age: 44 Year
  Sex: Female
  Weight: 96.16 kg

DRUGS (2)
  1. OXYCODONE-ACETAMINOPHEN [Suspect]
     Indication: DIARRHOEA
     Route: 048
     Dates: start: 20140220, end: 20140309
  2. OXYCODONE-ACETAMINOPHEN [Suspect]
     Indication: PAIN
     Route: 048
     Dates: start: 20140220, end: 20140309

REACTIONS (6)
  - Product odour abnormal [None]
  - Disorientation [None]
  - Asthenia [None]
  - Arthralgia [None]
  - Product quality issue [None]
  - Product contamination [None]
